APPROVED DRUG PRODUCT: NYSTATIN
Active Ingredient: NYSTATIN
Strength: 100,000 UNITS/GM
Dosage Form/Route: CREAM;TOPICAL
Application: A065315 | Product #001
Applicant: CHARTWELL RX SCIENCES LLC
Approved: May 31, 2006 | RLD: No | RS: No | Type: DISCN